FAERS Safety Report 25592826 (Version 1)
Quarter: 2025Q3

REPORT INFORMATION
  Report Type: Spontaneous
  Country: US (occurrence: US)
  Receive Date: 20250722
  Receipt Date: 20250722
  Transmission Date: 20251020
  Serious: No
  Sender: SANOFI AVENTIS
  Company Number: US-SA-2025SA208427

PATIENT
  Sex: Female
  Weight: 54.55 kg

DRUGS (6)
  1. DUPIXENT [Suspect]
     Active Substance: DUPILUMAB
     Indication: Ovarian cancer
     Dosage: 300 MG, QOW
     Route: 058
  2. ELIQUIS [Concomitant]
     Active Substance: APIXABAN
  3. FLONASE ALLERGY RELIEF [Concomitant]
     Active Substance: FLUTICASONE PROPIONATE
  4. WIXELA INHUB [Concomitant]
     Active Substance: FLUTICASONE PROPIONATE\SALMETEROL XINAFOATE
  5. CITALOPRAM HYDROBROMIDE [Concomitant]
     Active Substance: CITALOPRAM HYDROBROMIDE
  6. ZEJULA [Concomitant]
     Active Substance: NIRAPARIB

REACTIONS (2)
  - Blood test abnormal [Unknown]
  - Product use in unapproved indication [Unknown]
